FAERS Safety Report 7069759-1 (Version None)
Quarter: 2010Q4

REPORT INFORMATION
  Report Type: 
  Country: None (occurrence: None)
  Receive Date: 20101028
  Receipt Date: 20100528
  Transmission Date: 20110411
  Serious: No
  Sender: FDA-Public Use
  Company Number: US-WYE-H15433910

PATIENT
  Age: 86 Year
  Sex: Male

DRUGS (5)
  1. CORDARONE [Suspect]
  2. ACETYLSALICYLIC ACID [Suspect]
  3. PLAVIX [Concomitant]
  4. ATORVASTATIN [Suspect]
  5. METOPROLOL [Suspect]

REACTIONS (2)
  - MYALGIA [None]
  - PAIN IN EXTREMITY [None]
